FAERS Safety Report 24576053 (Version 1)
Quarter: 2024Q4

REPORT INFORMATION
  Report Type: Spontaneous
  Country: US (occurrence: None)
  Receive Date: 20241102
  Receipt Date: 20241102
  Transmission Date: 20250114
  Serious: No
  Sender: Public
  Company Number: None

PATIENT
  Age: 61 Year
  Sex: Female
  Weight: 70.65 kg

DRUGS (11)
  1. OZEMPIC [Suspect]
     Active Substance: SEMAGLUTIDE
     Indication: Blood cholesterol increased
     Dosage: OTHER QUANTITY : .25 INJECTION(S);?OTHER FREQUENCY : ONCE WEEKLY;?
     Dates: start: 20241022
  2. NALTREXONE [Concomitant]
     Active Substance: NALTREXONE
  3. BREO ELLIPTA [Concomitant]
     Active Substance: FLUTICASONE FUROATE\VILANTEROL TRIFENATATE
  4. TESTOSTERONE [Concomitant]
     Active Substance: TESTOSTERONE
  5. PROGESTERONE [Concomitant]
     Active Substance: PROGESTERONE
  6. NAC [Concomitant]
  7. MAGNESIUM [Concomitant]
     Active Substance: MAGNESIUM
  8. VITAMIN C [Concomitant]
     Active Substance: ASCORBIC ACID
  9. Fish oil with Co-Q-10 [Concomitant]
  10. CHROMIUM [Concomitant]
     Active Substance: CHROMIC CHLORIDE\CHROMIUM
  11. VITAMIN D3 [Concomitant]
     Active Substance: CHOLECALCIFEROL

REACTIONS (8)
  - Anhedonia [None]
  - Decreased activity [None]
  - Irritability [None]
  - Anger [None]
  - Depressed mood [None]
  - Depressed mood [None]
  - Emotional disorder [None]
  - Hypophagia [None]
